FAERS Safety Report 11298051 (Version 1)
Quarter: 2015Q3

REPORT INFORMATION
  Report Type: Spontaneous
  Country: US (occurrence: US)
  Receive Date: 20150722
  Receipt Date: 20150722
  Transmission Date: 20151125
  Serious: No
  Sender: FDA-Public Use
  Company Number: US-ELI_LILLY_AND_COMPANY-US201105002123

PATIENT
  Age: 12 Year
  Sex: Male

DRUGS (1)
  1. HUMATROPE [Suspect]
     Active Substance: SOMATROPIN
     Dosage: 1.8 UNK, QD

REACTIONS (4)
  - Bone disorder [Not Recovered/Not Resolved]
  - Bone lesion [Not Recovered/Not Resolved]
  - Arthralgia [Recovered/Resolved]
  - Osteochondrosis [Not Recovered/Not Resolved]

NARRATIVE: CASE EVENT DATE: 201102
